FAERS Safety Report 6359513-8 (Version None)
Quarter: 2009Q3

REPORT INFORMATION
  Report Type: 
  Country: None (occurrence: None)
  Receive Date: 20090917
  Receipt Date: 20090908
  Transmission Date: 20100115
  Serious: Yes (Hospitalization)
  Sender: FDA-Public Use
  Company Number: US-AVENTIS-200916417US

PATIENT
  Sex: Male

DRUGS (1)
  1. TAXOTERE [Suspect]
     Dosage: DOSE: UNK
     Route: 042
     Dates: start: 20081101, end: 20081101

REACTIONS (3)
  - ASCITES [None]
  - INFLAMMATION [None]
  - PANCREATITIS ACUTE [None]
